FAERS Safety Report 22722434 (Version 2)
Quarter: 2023Q4

REPORT INFORMATION
  Report Type: Report from Study
  Country: US (occurrence: US)
  Receive Date: 20230719
  Receipt Date: 20231109
  Transmission Date: 20240109
  Serious: Yes (Other)
  Sender: FDA-Public Use
  Company Number: US-TAKEDA-2023TUS007675

PATIENT
  Age: 23 Year
  Sex: Female

DRUGS (2)
  1. VONICOG ALFA [Suspect]
     Active Substance: VONICOG ALFA
     Indication: Haemorrhage
     Dosage: 3900 INTERNATIONAL UNIT
     Route: 065
  2. VONICOG ALFA [Suspect]
     Active Substance: VONICOG ALFA
     Indication: Injury
     Dosage: 3900 INTERNATIONAL UNIT
     Route: 042

REACTIONS (1)
  - Heavy menstrual bleeding [Recovered/Resolved]

NARRATIVE: CASE EVENT DATE: 20221218
